FAERS Safety Report 25346650 (Version 1)
Quarter: 2025Q2

REPORT INFORMATION
  Report Type: Spontaneous
  Country: CH (occurrence: CH)
  Receive Date: 20250522
  Receipt Date: 20250522
  Transmission Date: 20250716
  Serious: Yes (Death, Other)
  Sender: GILEAD
  Company Number: CH-GILEAD-2025-0714197

PATIENT
  Age: 54 Year
  Sex: Female

DRUGS (1)
  1. TRODELVY [Suspect]
     Active Substance: SACITUZUMAB GOVITECAN-HZIY
     Indication: Triple negative breast cancer
     Route: 065
     Dates: start: 202503, end: 20250502

REACTIONS (1)
  - Disease progression [Fatal]

NARRATIVE: CASE EVENT DATE: 20250301
